FAERS Safety Report 8792460 (Version 2)
Quarter: 2015Q3

REPORT INFORMATION
  Report Type: Report from Study
  Country: US (occurrence: US)
  Receive Date: 20120918
  Receipt Date: 20150701
  Transmission Date: 20151125
  Serious: Yes (Death, Other)
  Sender: FDA-Public Use
  Company Number: US-ROCHE-1128490

PATIENT
  Sex: Female
  Weight: 63 kg

DRUGS (31)
  1. HERCEPTIN [Suspect]
     Active Substance: TRASTUZUMAB
     Route: 042
     Dates: start: 20050919
  2. GEMZAR [Concomitant]
     Active Substance: GEMCITABINE HYDROCHLORIDE
     Route: 065
  3. PROCRIT [Concomitant]
     Active Substance: ERYTHROPOIETIN
     Route: 058
  4. AVASTIN [Suspect]
     Active Substance: BEVACIZUMAB
     Route: 042
     Dates: start: 20050919
  5. HERCEPTIN [Suspect]
     Active Substance: TRASTUZUMAB
     Route: 042
     Dates: start: 20050926
  6. AVASTIN [Suspect]
     Active Substance: BEVACIZUMAB
     Indication: BREAST CANCER FEMALE
     Route: 042
     Dates: start: 20050721
  7. AVASTIN [Suspect]
     Active Substance: BEVACIZUMAB
     Route: 042
     Dates: start: 20050818
  8. BENADRYL [Concomitant]
     Active Substance: DIPHENHYDRAMINE HYDROCHLORIDE
     Route: 042
  9. HERCEPTIN [Suspect]
     Active Substance: TRASTUZUMAB
     Route: 042
     Dates: start: 20050908
  10. XELODA [Suspect]
     Active Substance: CAPECITABINE
     Indication: BREAST CANCER FEMALE
     Route: 065
     Dates: end: 20050531
  11. ZOMETA [Suspect]
     Active Substance: ZOLEDRONIC ACID
     Indication: PRODUCT USED FOR UNKNOWN INDICATION
     Route: 065
  12. ALOXI [Concomitant]
     Active Substance: PALONOSETRON HYDROCHLORIDE
     Route: 065
  13. SENOKOT [Concomitant]
     Active Substance: SENNOSIDES
  14. ATIVAN [Concomitant]
     Active Substance: LORAZEPAM
     Dosage: PM
     Route: 065
  15. DURAGESIC [Concomitant]
     Active Substance: FENTANYL
     Route: 065
  16. ALPHA LIPOIC ACID [Concomitant]
     Active Substance: .ALPHA.-LIPOIC ACID
     Route: 065
  17. RITALIN [Concomitant]
     Active Substance: METHYLPHENIDATE HYDROCHLORIDE
     Dosage: PM
     Route: 065
  18. LEXAPRO [Concomitant]
     Active Substance: ESCITALOPRAM OXALATE
  19. AVASTIN [Suspect]
     Active Substance: BEVACIZUMAB
     Route: 042
     Dates: start: 20050901
  20. HERCEPTIN [Suspect]
     Active Substance: TRASTUZUMAB
     Indication: BREAST CANCER FEMALE
     Route: 042
     Dates: start: 20050901
  21. ABRAXANE [Concomitant]
     Active Substance: PACLITAXEL
     Route: 065
  22. DECADRON [Concomitant]
     Active Substance: DEXAMETHASONE
     Route: 065
  23. SODIUM SULAMYD [Concomitant]
     Active Substance: SULFACETAMIDE SODIUM
  24. LUPRON [Concomitant]
     Active Substance: LEUPROLIDE ACETATE
     Route: 030
  25. AVASTIN [Suspect]
     Active Substance: BEVACIZUMAB
     Indication: HAEMATOLOGICAL MALIGNANCY
     Route: 042
     Dates: start: 20050804
  26. TYLENOL #1 (UNITED STATES) [Concomitant]
     Route: 048
  27. VICOPROFEN [Concomitant]
     Active Substance: HYDROCODONE BITARTRATE\IBUPROFEN
     Dosage: PM
     Route: 048
  28. VITAMIN B6 [Concomitant]
     Active Substance: PYRIDOXINE HYDROCHLORIDE
  29. RESTORIL (UNITED STATES) [Concomitant]
     Route: 065
  30. ZYRTEC [Concomitant]
     Active Substance: CETIRIZINE HYDROCHLORIDE
  31. OXYIR [Concomitant]
     Active Substance: OXYCODONE HYDROCHLORIDE

REACTIONS (20)
  - Fatigue [Unknown]
  - Constipation [Unknown]
  - Vomiting [Unknown]
  - Dyspnoea [Unknown]
  - Thrombocytopenia [Unknown]
  - Disease progression [Unknown]
  - Off label use [Unknown]
  - Death [Fatal]
  - Pain in jaw [Unknown]
  - Vision blurred [Unknown]
  - Hypoaesthesia [Unknown]
  - Eye infection [Unknown]
  - Nausea [Unknown]
  - Hypoaesthesia oral [Unknown]
  - Arthralgia [Unknown]
  - Decreased appetite [Unknown]
  - Dizziness [Unknown]
  - Discomfort [Unknown]
  - Eye pain [Unknown]
  - Abdominal pain upper [Unknown]
